FAERS Safety Report 25136566 (Version 1)
Quarter: 2025Q1

REPORT INFORMATION
  Report Type: Spontaneous
  Country: US (occurrence: None)
  Receive Date: 20250328
  Receipt Date: 20250328
  Transmission Date: 20250409
  Serious: Yes (Life-Threatening, Hospitalization)
  Sender: FDA-CTU
  Company Number: None

PATIENT
  Age: 62 Year
  Sex: Male

DRUGS (1)
  1. SUCCINYLCHOLINE CHLORIDE [Suspect]
     Active Substance: SUCCINYLCHOLINE CHLORIDE
     Indication: Surgery
     Route: 042
     Dates: start: 20250114, end: 20250114

REACTIONS (4)
  - Respiratory depression [None]
  - Acute respiratory failure [None]
  - Paralysis [None]
  - Pseudocholinesterase deficiency [None]

NARRATIVE: CASE EVENT DATE: 20250114
